FAERS Safety Report 9437700 (Version 1)
Quarter: 2013Q3

REPORT INFORMATION
  Report Type: Spontaneous
  Country: GB (occurrence: GB)
  Receive Date: 20130802
  Receipt Date: 20130802
  Transmission Date: 20140515
  Serious: Yes (Life-Threatening, Hospitalization, Other)
  Sender: FDA-Public Use
  Company Number: GB-B.I. PHARMACEUTICALS,INC./RIDGEFIELD-2013-UK-01578UK

PATIENT
  Age: 93 Year
  Sex: Female
  Weight: 68.5 kg

DRUGS (6)
  1. PRADAXA [Suspect]
     Indication: ATRIAL FIBRILLATION
     Dosage: 220 MG
     Route: 048
     Dates: start: 20130614, end: 20130711
  2. BISOPROLOL [Concomitant]
  3. CLARITHROMYCIN [Concomitant]
  4. CO-AMILOFRUSE [Concomitant]
  5. DIGOXIN [Concomitant]
  6. TINZAPARIN [Concomitant]
     Indication: ATRIAL FIBRILLATION

REACTIONS (5)
  - Pericardial effusion [Not Recovered/Not Resolved]
  - Dyspnoea [Not Recovered/Not Resolved]
  - Cardiac tamponade [Not Recovered/Not Resolved]
  - Condition aggravated [Not Recovered/Not Resolved]
  - Pericardial haemorrhage [Not Recovered/Not Resolved]
